FAERS Safety Report 7494296-X (Version None)
Quarter: 2011Q2

REPORT INFORMATION
  Report Type: 
  Country: None (occurrence: None)
  Receive Date: 20110520
  Receipt Date: 20110509
  Transmission Date: 20111010
  Serious: Yes (Other)
  Sender: FDA-Public Use
  Company Number: US-ACTELION-A-US2010-42606

PATIENT

DRUGS (2)
  1. COUMADIN [Concomitant]
  2. TRACLEER [Suspect]
     Indication: PULMONARY ARTERIAL HYPERTENSION
     Dosage: UNK
     Route: 048
     Dates: start: 20100303

REACTIONS (6)
  - ASTHMA [None]
  - SINUSITIS [None]
  - KIDNEY INFECTION [None]
  - LUNG INFECTION [None]
  - NASOPHARYNGITIS [None]
  - OEDEMA PERIPHERAL [None]
